FAERS Safety Report 7475927-7 (Version None)
Quarter: 2011Q2

REPORT INFORMATION
  Report Type: 
  Country: None (occurrence: None)
  Receive Date: 20110512
  Receipt Date: 20110504
  Transmission Date: 20111010
  Serious: Yes (Other)
  Sender: FDA-Public Use
  Company Number: PHHY2009CA17803

PATIENT
  Sex: Male

DRUGS (3)
  1. SANDOSTATIN LAR [Suspect]
     Dosage: 30 MG, QMO
     Route: 030
  2. SANDOSTATIN LAR [Suspect]
     Indication: ALBRIGHT'S DISEASE
     Dosage: 30 MG, EVERY 4 WEEKS
     Route: 030
  3. SANDOSTATIN LAR [Suspect]
     Indication: PITUITARY TUMOUR
     Dosage: 30 MG, QMO
     Route: 030
     Dates: start: 20041217

REACTIONS (14)
  - GAIT DISTURBANCE [None]
  - BONE DISORDER [None]
  - ANXIETY [None]
  - VARICELLA [None]
  - TACHYPHRENIA [None]
  - FACIAL PAIN [None]
  - BONE PAIN [None]
  - PAIN [None]
  - HEADACHE [None]
  - ASTHENIA [None]
  - MALAISE [None]
  - HEART RATE INCREASED [None]
  - DYSPNOEA [None]
  - SENSATION OF HEAVINESS [None]
